FAERS Safety Report 9747500 (Version 2)
Quarter: 2013Q4

REPORT INFORMATION
  Report Type: Other
  Country: CI (occurrence: CI)
  Receive Date: 20131212
  Receipt Date: 20131212
  Transmission Date: 20140711
  Serious: Yes (Other)
  Sender: FDA-Public Use
  Company Number: CI-BRISTOL-MYERS SQUIBB COMPANY-19859917

PATIENT
  Sex: 0

DRUGS (2)
  1. STOCRIN CAPS [Suspect]
     Indication: HIV INFECTION
     Route: 048
  2. TRUVADA [Concomitant]
     Indication: HIV INFECTION
     Dosage: 1DF= TABLET, 250MG/300 MG

REACTIONS (3)
  - Delirium [Unknown]
  - Nightmare [Unknown]
  - Dizziness [Unknown]
